FAERS Safety Report 6793621-2 (Version None)
Quarter: 2010Q2

REPORT INFORMATION
  Report Type: 
  Country: None (occurrence: None)
  Receive Date: 20100624
  Receipt Date: 20090307
  Transmission Date: 20101027
  Serious: Yes (Other)
  Sender: FDA-Public Use
  Company Number: US-PFIZER INC-2008101518

PATIENT
  Sex: Male
  Weight: 143.31 kg

DRUGS (4)
  1. SUTENT [Suspect]
     Indication: RENAL CANCER
     Dosage: 37.5 MG, UNK
     Route: 048
     Dates: start: 20060901
  2. VICODIN [Concomitant]
     Dosage: UNK
     Dates: start: 20060901
  3. CASODEX [Concomitant]
     Dosage: UNK
     Dates: start: 20080701
  4. LUPRON [Concomitant]
     Dosage: UNK
     Dates: start: 20080701

REACTIONS (1)
  - BLOOD ALKALINE PHOSPHATASE INCREASED [None]
